FAERS Safety Report 4385477-2 (Version None)
Quarter: 2004Q2

REPORT INFORMATION
  Report Type: 
  Country: None (occurrence: None)
  Receive Date: 20040622
  Receipt Date: 20040607
  Transmission Date: 20050107
  Serious: Yes (Hospitalization)
  Sender: FDA-Public Use
  Company Number: 237483

PATIENT
  Age: 84 Year
  Sex: Female

DRUGS (2)
  1. PROTAPHANE (INSULIN HUMAN) SUSPENSION FOR INJECTION [Suspect]
     Indication: ILL-DEFINED DISORDER
  2. HUMALOG [Concomitant]

REACTIONS (2)
  - BLOOD GLUCOSE INCREASED [None]
  - BLOOD PRESSURE INCREASED [None]
